FAERS Safety Report 13385386 (Version 1)
Quarter: 2017Q1

REPORT INFORMATION
  Report Type: Report from Study
  Country: BR (occurrence: BR)
  Receive Date: 20170330
  Receipt Date: 20170330
  Transmission Date: 20170429
  Serious: Yes (Other)
  Sender: FDA-Public Use
  Company Number: PHHY2017BR047919

PATIENT
  Age: 92 Year
  Sex: Female

DRUGS (1)
  1. EXELON PATCH [Suspect]
     Active Substance: RIVASTIGMINE
     Indication: MOOD ALTERED
     Dosage: 4.6 MG, QD PATCH 5 (CM2)
     Route: 062

REACTIONS (8)
  - Limb discomfort [Unknown]
  - Dysstasia [Unknown]
  - Gait disturbance [Unknown]
  - Dementia Alzheimer^s type [Unknown]
  - Insomnia [Recovering/Resolving]
  - Aggression [Unknown]
  - Memory impairment [Unknown]
  - Product use issue [Unknown]
